FAERS Safety Report 8888132 (Version 4)
Quarter: 2013Q3

REPORT INFORMATION
  Report Type: Report from Study
  Country: DE (occurrence: DE)
  Receive Date: 20121106
  Receipt Date: 20130902
  Transmission Date: 20140515
  Serious: Yes (Hospitalization)
  Sender: FDA-Public Use
  Company Number: DE-UCBSA-069610

PATIENT
  Age: 79 Year
  Sex: Male

DRUGS (20)
  1. VIMPAT [Suspect]
     Indication: EPILEPSY
     Dosage: 100-0-100-0
     Dates: start: 20120712
  2. VIMPAT [Suspect]
     Indication: EPILEPSY
     Dosage: 150-0-150-0
     Dates: start: 20120626, end: 20120711
  3. VIMPAT [Suspect]
     Indication: EPILEPSY
     Dosage: 100-0-150-0
     Dates: start: 20120619, end: 20120625
  4. VIMPAT [Suspect]
     Indication: EPILEPSY
     Dosage: 100-0-100-0
     Dates: start: 20120419, end: 20120618
  5. KEPPRA [Suspect]
     Indication: CONVULSION
     Dosage: UNKNOWN DOSE
     Dates: start: 20121009, end: 20121009
  6. KEPPRA [Suspect]
     Indication: CONVULSION
     Dosage: MORNING
     Dates: start: 20121002, end: 20121008
  7. KEPPRA [Suspect]
     Indication: CONVULSION
     Dosage: MORNING AND EVENING
     Dates: start: 20120626, end: 20121001
  8. KEPPRA [Suspect]
     Indication: CONVULSION
     Dosage: 250MG IN MORNING AND 500MG IN EVENING
     Dates: start: 20120619, end: 20120625
  9. KEPPRA [Suspect]
     Indication: CONVULSION
     Dosage: MORNING AND EVENING
     Dates: start: 20120606, end: 20120618
  10. KEPPRA [Suspect]
     Indication: CONVULSION
     Dosage: 500 MG IN MORNING AND 750 MG IN EVENING
     Dates: start: 20120530, end: 20120605
  11. KEPPRA [Suspect]
     Indication: CONVULSION
     Dosage: MORNING AND EVENING
     Dates: start: 20120523, end: 20120529
  12. KEPPRA [Suspect]
     Indication: CONVULSION
     Dosage: MORNING AND EVENING
     Dates: start: 20120419, end: 20120522
  13. LAMOTRIGIN [Suspect]
     Indication: EPILEPSY
     Dates: start: 20121012, end: 20121018
  14. LAMOTRIGIN [Suspect]
     Indication: EPILEPSY
     Dosage: MORNING AND EVENING
     Dates: start: 20121002, end: 20121011
  15. LAMOTRIGIN [Suspect]
     Indication: EPILEPSY
     Dosage: MORNING AND EVENING
     Dates: start: 20120918, end: 20121001
  16. LAMOTRIGIN [Suspect]
     Indication: EPILEPSY
     Dosage: EVENING
     Dates: start: 20120904, end: 20120917
  17. SIMVASTATIN [Concomitant]
     Indication: LIPIDS ABNORMAL
     Dosage: 0-0-1
     Dates: start: 20120419
  18. PREDNISOLON [Concomitant]
     Indication: PAIN
     Dosage: 1/2-0-0
     Dates: start: 20120419
  19. CLOPIDOGREL [Concomitant]
     Indication: THROMBOSIS
     Dosage: 1-0-0
     Dates: start: 20120419
  20. VIGANTOLETTEN [Concomitant]
     Indication: VITAMIN SUPPLEMENTATION
     Dosage: 0-0-1
     Dates: start: 20120419

REACTIONS (1)
  - Convulsion [Recovered/Resolved]
